FAERS Safety Report 8274226-3 (Version None)
Quarter: 2012Q2

REPORT INFORMATION
  Report Type: 
  Country: None (occurrence: None)
  Receive Date: 20120411
  Receipt Date: 20120404
  Transmission Date: 20120825
  Serious: Yes (Hospitalization)
  Sender: FDA-Public Use
  Company Number: SE-VERTEX PHARMACEUTICALS INC.-000000000000000251

PATIENT
  Sex: Female

DRUGS (3)
  1. COPEGUS [Concomitant]
     Indication: HEPATITIS C
     Dates: start: 20120127
  2. PEGASYS [Concomitant]
     Indication: HEPATITIS C
     Dates: start: 20120127
  3. INCIVO (TELAPREVIR) [Suspect]
     Indication: HEPATITIS C
     Dosage: DOSAGE FORM: TABLET
     Route: 048
     Dates: start: 20120127

REACTIONS (4)
  - ANAEMIA [None]
  - WEIGHT DECREASED [None]
  - RASH PRURITIC [None]
  - NAUSEA [None]
